FAERS Safety Report 8590965-9 (Version None)
Quarter: 2012Q3

REPORT INFORMATION
  Report Type: 
  Country: None (occurrence: None)
  Receive Date: 20120813
  Receipt Date: 20120801
  Transmission Date: 20120928
  Serious: Yes (Life-Threatening, Hospitalization, Other)
  Sender: FDA-Public Use
  Company Number: FR-BAXTER-2012BAX001907

PATIENT
  Sex: Male

DRUGS (21)
  1. OFLOXACIN [Suspect]
     Indication: INFECTION PROPHYLAXIS
     Dosage: 200MG/40 ML
     Route: 042
     Dates: start: 20120214, end: 20120314
  2. ACEBUTOLOL [Concomitant]
     Route: 048
     Dates: start: 20120126
  3. EXTRANEAL [Suspect]
     Indication: PERITONEAL DIALYSIS
     Route: 033
     Dates: start: 20120307, end: 20120309
  4. LASIX [Concomitant]
     Route: 065
  5. PHYSIONEAL 40 GLUCOSE 1,36%, SOLUTION POUR DIALYSE PERITONEALE [Concomitant]
     Indication: PERITONEAL DIALYSIS
     Route: 033
     Dates: start: 20120307
  6. RAMIPRIL [Concomitant]
     Dosage: 1 UNIT
     Route: 065
     Dates: end: 20120217
  7. ESOMEPRAZOLE [Concomitant]
     Route: 065
  8. ZOPICLONE [Concomitant]
     Route: 065
  9. SEVOFLURANE [Concomitant]
     Route: 065
     Dates: start: 20120214
  10. PROPOFOL [Concomitant]
     Route: 065
     Dates: start: 20120214
  11. FLUINDIONE [Suspect]
     Route: 048
     Dates: start: 20120216
  12. URAPIDIL [Suspect]
     Indication: HYPERTENSION
     Route: 065
     Dates: start: 20120217
  13. SPASFON                            /00934601/ [Concomitant]
     Route: 065
  14. FLUINDIONE [Suspect]
     Route: 048
     Dates: start: 20111125
  15. CALCIFEDIOL [Concomitant]
     Dosage: 4 DROPS
     Route: 065
  16. SODIUM POLYSTYRENE SULFONATE [Concomitant]
     Dosage: 1 MEASURING SPOON/DAY
     Route: 065
  17. SUFENTANIL CITRATE [Concomitant]
     Route: 065
     Dates: start: 20120214
  18. PARACETOL [Concomitant]
     Route: 065
  19. PREDNISONE TAB [Concomitant]
     Route: 048
  20. AMLODIPINE [Concomitant]
     Route: 048
  21. CALCIUM CARBONATE [Concomitant]
     Dosage: 1 TABLET
     Route: 065

REACTIONS (18)
  - ENTEROBACTER INFECTION [None]
  - DELIRIUM [None]
  - POLYP [None]
  - BIPOLAR I DISORDER [None]
  - TOXIC EPIDERMAL NECROLYSIS [None]
  - SECRETION DISCHARGE [None]
  - PNEUMONIA [None]
  - PYREXIA [None]
  - AGITATION [None]
  - ESCHERICHIA SEPSIS [None]
  - SEPSIS [None]
  - KLEBSIELLA INFECTION [None]
  - CANDIDIASIS [None]
  - DERMATITIS CONTACT [None]
  - SUBCUTANEOUS ABSCESS [None]
  - PSEUDOMONAS INFECTION [None]
  - FLUID OVERLOAD [None]
  - CONJUNCTIVAL DISORDER [None]
